FAERS Safety Report 6779485-1 (Version None)
Quarter: 2010Q2

REPORT INFORMATION
  Report Type: 
  Country: None (occurrence: None)
  Receive Date: 20100618
  Receipt Date: 20100608
  Transmission Date: 20101027
  Serious: Yes (Other)
  Sender: FDA-Public Use
  Company Number: GB-ABBOTT-10P-167-0641468-00

PATIENT
  Age: 28 Year
  Sex: Female

DRUGS (2)
  1. CLARITHROMYCIN [Suspect]
     Indication: VAGINITIS BACTERIAL
     Route: 048
     Dates: start: 20100420, end: 20100425
  2. LAMICTAL [Suspect]
     Indication: EPILEPSY
     Route: 048
     Dates: start: 20070201

REACTIONS (3)
  - AURA [None]
  - CONVULSION [None]
  - HEADACHE [None]
